FAERS Safety Report 20101503 (Version 1)
Quarter: 2021Q4

REPORT INFORMATION
  Report Type: Spontaneous
  Country: US (occurrence: None)
  Receive Date: 20211122
  Receipt Date: 20211122
  Transmission Date: 20220303
  Serious: No
  Sender: FDA-Public Use
  Company Number: None

PATIENT
  Age: 40 Year
  Sex: Female

DRUGS (1)
  1. CAPECITABINE [Suspect]
     Active Substance: CAPECITABINE
     Dosage: FREQUENCY : TWICE A DAY;?
     Route: 048

REACTIONS (7)
  - Neck pain [None]
  - Ear pain [None]
  - Pain in jaw [None]
  - Oropharyngeal pain [None]
  - Fatigue [None]
  - Illness [None]
  - Diarrhoea [None]

NARRATIVE: CASE EVENT DATE: 20211119
